FAERS Safety Report 5137200-1 (Version None)
Quarter: 2006Q4

REPORT INFORMATION
  Report Type: 
  Country: None (occurrence: None)
  Receive Date: 20061030
  Receipt Date: 20050914
  Transmission Date: 20070319
  Serious: No
  Sender: FDA-Public Use
  Company Number: US-GLAXOSMITHKLINE-A0574226A

PATIENT
  Age: 81 Year
  Sex: Female

DRUGS (10)
  1. ADVAIR HFA [Suspect]
     Indication: CHRONIC OBSTRUCTIVE PULMONARY DISEASE
     Dosage: 1PUFF TWICE PER DAY
     Route: 055
     Dates: start: 20050101, end: 20050505
  2. IPRATROPIUM BROMIDE [Concomitant]
  3. GLIPIZIDE [Concomitant]
  4. CALCIUM GLUCONATE [Concomitant]
  5. ZOCOR [Concomitant]
  6. ASPIRIN [Concomitant]
  7. VITAMINS [Concomitant]
  8. PLAVIX [Concomitant]
  9. SYNTHROID [Concomitant]
  10. ALBUTEROL [Concomitant]
     Route: 055

REACTIONS (1)
  - DYSPHONIA [None]
